FAERS Safety Report 11912676 (Version 1)
Quarter: 2016Q1

REPORT INFORMATION
  Report Type: Spontaneous
  Country: US (occurrence: None)
  Receive Date: 20160112
  Receipt Date: 20160112
  Transmission Date: 20160526
  Serious: Yes (Disabling)
  Sender: FDA-Public Use
  Company Number: None

PATIENT
  Age: 66 Year
  Sex: Male
  Weight: 92.99 kg

DRUGS (12)
  1. SINEMET CR [Concomitant]
     Active Substance: CARBIDOPA\LEVODOPA
  2. OMEGA 3-6-9 [Concomitant]
     Active Substance: FISH OIL
  3. PRADAXA [Suspect]
     Active Substance: DABIGATRAN ETEXILATE MESYLATE
     Indication: ATRIAL FIBRILLATION
     Route: 048
     Dates: start: 20141007, end: 20141014
  4. VITAMIN B12 [Concomitant]
     Active Substance: CYANOCOBALAMIN
  5. VITAMIN D3 [Concomitant]
     Active Substance: CHOLECALCIFEROL
  6. GLUCOSAMINE CHONDROITIN [Concomitant]
     Active Substance: CHONDROITIN SULFATE (BOVINE)\GLUCOSAMINE HYDROCHLORIDE
  7. B15 [Concomitant]
  8. VITAMIN B12 [Concomitant]
     Active Substance: CYANOCOBALAMIN
  9. CIRCULEGA [Concomitant]
  10. SAW PALMETTO [Concomitant]
     Active Substance: SAW PALMETTO
  11. MULTIVITAMIN [Concomitant]
     Active Substance: VITAMINS
  12. DOLOMITE [Concomitant]

REACTIONS (13)
  - Arthralgia [None]
  - Incontinence [None]
  - Vision blurred [None]
  - Rash [None]
  - Skin discolouration [None]
  - Vertigo [None]
  - Aneurysm [None]
  - Activities of daily living impaired [None]
  - Balance disorder [None]
  - Asthenia [None]
  - Lacrimation increased [None]
  - Myalgia [None]
  - Movement disorder [None]

NARRATIVE: CASE EVENT DATE: 201410
